FAERS Safety Report 8950536 (Version 2)
Quarter: 2012Q4

REPORT INFORMATION
  Report Type: 
  Country: IT (occurrence: IT)
  Receive Date: 20121206
  Receipt Date: 20121220
  Transmission Date: 20130627
  Serious: Yes (Hospitalization)
  Sender: FDA-Public Use
  Company Number: IT-FRI-1000040792

PATIENT
  Age: 69 Year
  Sex: Female

DRUGS (6)
  1. FOSFOMYCIN [Suspect]
     Indication: CYSTITIS
     Dosage: 3 Gram every other day
     Route: 048
     Dates: start: 20121119, end: 20121121
  2. LANSOPRAZOLE [Concomitant]
     Dosage: 30 mg
  3. ALLOPURINOLO [Concomitant]
     Dosage: 100 mg
  4. SINVACOR [Concomitant]
     Dosage: 20 mg
  5. CARDIOASPIRIN [Concomitant]
  6. DELAPRIDE [Concomitant]
     Dosage: 30 mg/2.5 mg

REACTIONS (3)
  - Diarrhoea [Recovered/Resolved with Sequelae]
  - Erythema [Recovered/Resolved with Sequelae]
  - Vomiting [Recovered/Resolved with Sequelae]
